FAERS Safety Report 25345125 (Version 1)
Quarter: 2025Q2

REPORT INFORMATION
  Report Type: Spontaneous
  Country: AU (occurrence: AU)
  Receive Date: 20250522
  Receipt Date: 20250522
  Transmission Date: 20250716
  Serious: Yes (Death, Hospitalization, Other)
  Sender: Kenvue
  Company Number: None

PATIENT

DRUGS (1)
  1. ACETAMINOPHEN [Suspect]
     Active Substance: ACETAMINOPHEN
     Indication: Product used for unknown indication
     Route: 065

REACTIONS (11)
  - Completed suicide [Fatal]
  - Agitation [Fatal]
  - Confusional state [Fatal]
  - Hypertonia [Fatal]
  - Brain oedema [Fatal]
  - Condition aggravated [Fatal]
  - Acute hepatic failure [Unknown]
  - Intentional overdose [Unknown]
  - Hyperammonaemia [Unknown]
  - Acidosis [Unknown]
  - Haemodynamic instability [Unknown]
